FAERS Safety Report 15778888 (Version 5)
Quarter: 2019Q1

REPORT INFORMATION
  Report Type: Report from Study
  Country: HU (occurrence: HU)
  Receive Date: 20190101
  Receipt Date: 20190207
  Transmission Date: 20190417
  Serious: Yes (Hospitalization)
  Sender: FDA-Public Use
  Company Number: HU-ROCHE-2229646

PATIENT
  Age: 86 Year
  Sex: Female
  Weight: 69 kg

DRUGS (10)
  1. VIDOTIN KOMB [Concomitant]
     Active Substance: INDAPAMIDE\PERINDOPRIL ERBUMINE
     Indication: HYPERTENSION
     Route: 048
     Dates: start: 2002
  2. EUNOCTIN [Concomitant]
     Route: 065
     Dates: start: 2016
  3. VIDOTIN KOMB [Suspect]
     Active Substance: INDAPAMIDE\PERINDOPRIL ERBUMINE
     Indication: HYPERTENSION
     Dosage: 1.25/4 MG 1-0-0
     Route: 048
     Dates: start: 2002
  4. CLONAZEPAM. [Suspect]
     Active Substance: CLONAZEPAM
     Indication: VASCULAR ENCEPHALOPATHY
     Route: 048
     Dates: start: 20140414
  5. BLINDED PF-06425090 [Suspect]
     Active Substance: INVESTIGATIONAL PRODUCT
     Indication: CLOSTRIDIUM DIFFICILE INFECTION
     Route: 048
     Dates: start: 20180417, end: 20180417
  6. BLINDED PF-06425090 [Suspect]
     Active Substance: INVESTIGATIONAL PRODUCT
     Route: 048
     Dates: start: 20180522, end: 20180522
  7. HALOPERIDOL. [Suspect]
     Active Substance: HALOPERIDOL
     Indication: PRODUCT USED FOR UNKNOWN INDICATION
     Route: 065
  8. LAMOTRIGINE. [Concomitant]
     Active Substance: LAMOTRIGINE
     Route: 065
     Dates: start: 2013
  9. ESOMEPRAZOL [Concomitant]
     Active Substance: ESOMEPRAZOLE
     Route: 065
     Dates: start: 2016
  10. ZYLLT [Concomitant]
     Active Substance: CLOPIDOGREL BISULFATE
     Indication: PRODUCT USED FOR UNKNOWN INDICATION
     Route: 065
     Dates: start: 2016

REACTIONS (4)
  - Product dose omission [Unknown]
  - Hypotension [Recovered/Resolved]
  - Contusion [Recovered/Resolved]
  - Confusional state [Recovered/Resolved]

NARRATIVE: CASE EVENT DATE: 20180901
